FAERS Safety Report 8864271 (Version 1)
Quarter: 2012Q4

REPORT INFORMATION
  Report Type: 
  Country: US (occurrence: US)
  Receive Date: 20121024
  Receipt Date: 20121024
  Transmission Date: 20130627
  Serious: No
  Sender: FDA-Public Use
  Company Number: US-AMGEN-USASP2011066625

PATIENT
  Age: 46 Year
  Sex: Female
  Weight: 77.1 kg

DRUGS (5)
  1. ENBREL [Suspect]
     Indication: PRODUCT USED FOR UNKNOWN INDICATION
     Dosage: 50 mg, qwk
  2. CELEBREX [Concomitant]
     Dosage: 400 mg, UNK
     Route: 048
  3. PREVACID [Concomitant]
     Dosage: 30 mg, UNK
  4. METHOTREXATE [Concomitant]
     Dosage: UNK
  5. FOLIC ACID [Concomitant]
     Dosage: 5 mg, UNK
     Route: 048

REACTIONS (2)
  - Rheumatoid arthritis [Unknown]
  - Nasopharyngitis [Unknown]
